FAERS Safety Report 25415714 (Version 1)
Quarter: 2025Q2

REPORT INFORMATION
  Report Type: Spontaneous
  Country: US (occurrence: US)
  Receive Date: 20250610
  Receipt Date: 20250610
  Transmission Date: 20250716
  Serious: Yes (Life-Threatening, Hospitalization)
  Sender: ADVANZ PHARMA
  Company Number: US-ADVANZ PHARMA-202505004027

PATIENT

DRUGS (1)
  1. PHOTOFRIN [Suspect]
     Active Substance: PORFIMER SODIUM
     Indication: Lung neoplasm malignant

REACTIONS (7)
  - Skin injury [Unknown]
  - Blister [Unknown]
  - Bedridden [Unknown]
  - Loss of personal independence in daily activities [Unknown]
  - Emotional distress [Unknown]
  - Nerve injury [Unknown]
  - Contusion [Unknown]
